FAERS Safety Report 26069235 (Version 1)
Quarter: 2025Q4

REPORT INFORMATION
  Report Type: Spontaneous
  Country: US (occurrence: US)
  Receive Date: 20251120
  Receipt Date: 20251120
  Transmission Date: 20260118
  Serious: No
  Sender: AMNEAL
  Company Number: US-AMNEAL PHARMACEUTICALS-2025-AMRX-03919

PATIENT
  Sex: Female

DRUGS (2)
  1. CREXONT [Suspect]
     Active Substance: CARBIDOPA\LEVODOPA
     Indication: Parkinsonism
     Dosage: (70/280 MG) TAKE 1 CAPSULE AT 9 AM AND 1 CAPSULE AT 9PM
     Route: 048
  2. CREXONT [Suspect]
     Active Substance: CARBIDOPA\LEVODOPA
     Dosage: (70/280 MG) 1 CAPSULES, 3 /DAY
     Route: 048

REACTIONS (1)
  - Memory impairment [Unknown]
